FAERS Safety Report 7562185-8 (Version None)
Quarter: 2011Q2

REPORT INFORMATION
  Report Type: 
  Country: None (occurrence: None)
  Receive Date: 20110622
  Receipt Date: 20110616
  Transmission Date: 20111010
  Serious: Yes (Death, Hospitalization, Other)
  Sender: FDA-Public Use
  Company Number: JP-AMGEN-JPNSP2011025200

PATIENT
  Age: 81 Year
  Sex: Male
  Weight: 64 kg

DRUGS (5)
  1. FOLIC ACID [Concomitant]
     Indication: PROPHYLAXIS
     Dosage: 5 MG, WEEKLY
     Route: 048
     Dates: end: 20101102
  2. KETOPROFEN [Concomitant]
     Indication: RHEUMATOID ARTHRITIS
     Dosage: UNK
     Dates: end: 20101102
  3. RHEUMATREX [Suspect]
     Indication: RHEUMATOID ARTHRITIS
     Dosage: 4 MG, WEEKLY
     Route: 048
     Dates: start: 20081201, end: 20090301
  4. RHEUMATREX [Suspect]
     Dosage: 6 MG, WEEKLY
     Route: 048
     Dates: start: 20090301, end: 20101102
  5. ENBREL [Suspect]
     Indication: RHEUMATOID ARTHRITIS
     Dosage: 25 MG, 2X/WEEK
     Route: 058
     Dates: start: 20100501, end: 20101102

REACTIONS (3)
  - DIFFUSE LARGE B-CELL LYMPHOMA [None]
  - ANAEMIA [None]
  - GASTROINTESTINAL HAEMORRHAGE [None]
